FAERS Safety Report 9931014 (Version 2)
Quarter: 2014Q2

REPORT INFORMATION
  Report Type: Spontaneous
  Country: DE (occurrence: DE)
  Receive Date: 20140227
  Receipt Date: 20140403
  Transmission Date: 20141212
  Serious: Yes (Other)
  Sender: FDA-Public Use
  Company Number: PHHY2014DE023233

PATIENT
  Age: 39 Year
  Sex: Male

DRUGS (2)
  1. TEGRETAL [Suspect]
     Dosage: 1 DF, TID (400 MG X 3)
     Route: 048
  2. SIOFOR [Concomitant]
     Indication: DIABETES MELLITUS
     Dosage: UNK UKN, UNK
     Dates: start: 2012

REACTIONS (6)
  - Diabetes mellitus [Unknown]
  - Convulsion [Unknown]
  - Weight decreased [Unknown]
  - Fall [Unknown]
  - Skin exfoliation [Unknown]
  - Overdose [Unknown]
